FAERS Safety Report 8291159-7 (Version None)
Quarter: 2012Q2

REPORT INFORMATION
  Report Type: 
  Country: None (occurrence: None)
  Receive Date: 20120417
  Receipt Date: 20120411
  Transmission Date: 20120825
  Serious: Yes (Hospitalization)
  Sender: FDA-Public Use
  Company Number: FR-MERCK-1105FRA00122

PATIENT
  Age: 62 Year
  Sex: Female

DRUGS (9)
  1. SOTALOL HYDROCHLORIDE [Concomitant]
     Route: 065
  2. INSULIN GLARGINE [Concomitant]
     Route: 065
  3. ASPIRIN LYSINE [Concomitant]
     Route: 065
  4. GLYBURIDE [Concomitant]
     Route: 065
  5. LANSOPRAZOLE [Concomitant]
     Route: 065
  6. JANUVIA [Suspect]
     Indication: TYPE 2 DIABETES MELLITUS
     Route: 048
     Dates: start: 20101001, end: 20110401
  7. METFORMIN PAMOATE [Concomitant]
     Route: 065
  8. ROSUVASTATIN CALCIUM [Concomitant]
     Route: 065
  9. JANUVIA [Suspect]
     Route: 048
     Dates: start: 20110501, end: 20110501

REACTIONS (1)
  - ADHESION [None]
